FAERS Safety Report 5609438-8 (Version None)
Quarter: 2008Q1

REPORT INFORMATION
  Report Type: 
  Country: None (occurrence: None)
  Receive Date: 20080131
  Receipt Date: 20080116
  Transmission Date: 20080703
  Serious: Yes (Other)
  Sender: FDA-Public Use
  Company Number: CH-AMGEN-UK256286

PATIENT
  Sex: Female
  Weight: 62 kg

DRUGS (7)
  1. KINERET [Suspect]
     Indication: DRUG LEVEL
     Route: 058
     Dates: start: 20040820, end: 20041116
  2. GLIBENCLAMIDE [Concomitant]
     Route: 048
  3. METFORMIN HCL [Concomitant]
     Route: 048
  4. ASPIRIN [Concomitant]
     Route: 048
  5. CALCIUM GLUCONATE [Concomitant]
     Route: 048
  6. LISINOPRIL [Concomitant]
     Route: 048
  7. HYDROCHLOROTHIAZIDE [Concomitant]
     Route: 048

REACTIONS (2)
  - INJECTION SITE REACTION [None]
  - URINARY TRACT INFECTION [None]
